FAERS Safety Report 12715045 (Version 2)
Quarter: 2016Q3

REPORT INFORMATION
  Report Type: Spontaneous
  Country: DK (occurrence: DK)
  Receive Date: 20160905
  Receipt Date: 20160928
  Transmission Date: 20161109
  Serious: Yes (Hospitalization, Other)
  Sender: FDA-Public Use
  Company Number: DK-009507513-1608DNK011982

PATIENT
  Sex: Male
  Weight: 86 kg

DRUGS (5)
  1. PLAVIX [Concomitant]
     Active Substance: CLOPIDOGREL BISULFATE
     Dosage: UNK
     Dates: start: 20070725
  2. CRESTOR [Suspect]
     Active Substance: ROSUVASTATIN CALCIUM
  3. ZARATOR [Suspect]
     Active Substance: ATORVASTATIN CALCIUM
  4. MICARDIS [Concomitant]
     Active Substance: TELMISARTAN
     Dosage: UNK
     Dates: start: 20070725
  5. SIMVASTATIN. [Suspect]
     Active Substance: SIMVASTATIN
     Indication: HYPERTENSION
     Dosage: UNK
     Route: 048
     Dates: start: 20070725, end: 200807

REACTIONS (4)
  - Sleep disorder [Recovered/Resolved]
  - Sensory disturbance [Unknown]
  - Adenocarcinoma of colon [Recovered/Resolved]
  - Myalgia [Recovered/Resolved]

NARRATIVE: CASE EVENT DATE: 200708
